FAERS Safety Report 17309097 (Version 1)
Quarter: 2020Q1

REPORT INFORMATION
  Report Type: Spontaneous
  Country: TH (occurrence: TH)
  Receive Date: 20200123
  Receipt Date: 20200123
  Transmission Date: 20200409
  Serious: Yes (Other)
  Sender: FDA-Public Use
  Company Number: TH-BAYER-2020-008729

PATIENT
  Age: 68 Year
  Sex: Female

DRUGS (5)
  1. STIVARGA [Suspect]
     Active Substance: REGORAFENIB
     Indication: RECTAL CANCER STAGE IV
     Dosage: 120 MG (3 WEEKS ON, 1 WEEK OFF)
     Dates: start: 20180913, end: 2018
  2. STIVARGA [Suspect]
     Active Substance: REGORAFENIB
     Indication: RECTAL CANCER STAGE IV
     Dosage: 120 MG (3 WEEKS ON, 1 WEEK OFF)
     Dates: start: 20180809, end: 2018
  3. STIVARGA [Suspect]
     Active Substance: REGORAFENIB
     Indication: RECTAL CANCER STAGE IV
     Dosage: 120 MG (3 WEEKS ON, 1 WEEK OFF)
     Dates: start: 20181220
  4. STIVARGA [Suspect]
     Active Substance: REGORAFENIB
     Indication: RECTAL CANCER STAGE IV
     Dosage: 120 MG (3 WEEKS ON, 1 WEEK OFF)
     Dates: start: 20181025, end: 2018
  5. STIVARGA [Suspect]
     Active Substance: REGORAFENIB
     Indication: RECTAL CANCER STAGE IV
     Dosage: 120 MG (3 WEEKS ON, 1 WEEK OFF)
     Dates: start: 20181122, end: 2018

REACTIONS (9)
  - Diarrhoea [None]
  - Fatigue [None]
  - Metastases to liver [None]
  - Rectal cancer [None]
  - Paraesthesia [None]
  - Palmar-plantar erythrodysaesthesia syndrome [None]
  - Neutropenia [None]
  - Calcification metastatic [None]
  - Carcinoembryonic antigen increased [None]

NARRATIVE: CASE EVENT DATE: 2018
